FAERS Safety Report 8564249 (Version 2)
Quarter: 2014Q2

REPORT INFORMATION
  Report Type: Report from Study
  Country: US (occurrence: US)
  Receive Date: 20120516
  Receipt Date: 20140425
  Transmission Date: 20141212
  Serious: Yes (Hospitalization, Other)
  Sender: FDA-Public Use
  Company Number: US-ALEXION-A201101390

PATIENT
  Age: 70 Year
  Sex: Female

DRUGS (3)
  1. SOLIRIS [Suspect]
     Indication: PAROXYSMAL NOCTURNAL HAEMOGLOBINURIA
     Dosage: UNK
     Route: 042
  2. CYCLOSPORIN [Suspect]
     Indication: BONE MARROW FAILURE
     Dosage: UNK
     Dates: start: 201108
  3. NEUPOGEN [Concomitant]
     Dosage: UNK, 3 TIMES PER WEEK

REACTIONS (4)
  - Unresponsive to stimuli [Unknown]
  - Bone marrow failure [Unknown]
  - Feeling cold [Unknown]
  - Tremor [Unknown]
